FAERS Safety Report 13962935 (Version 1)
Quarter: 2017Q3

REPORT INFORMATION
  Report Type: Spontaneous
  Country: US (occurrence: US)
  Receive Date: 20170913
  Receipt Date: 20170913
  Transmission Date: 20171128
  Serious: No
  Sender: FDA-Public Use
  Company Number: US-VERTEX PHARMACEUTICALS-2017-004940

PATIENT
  Age: 58 Year
  Sex: Female

DRUGS (22)
  1. ASPIRIN. [Concomitant]
     Active Substance: ASPIRIN
  2. OXYCODONE [Concomitant]
     Active Substance: OXYCODONE
  3. CARVEDILOL. [Concomitant]
     Active Substance: CARVEDILOL
  4. OTEZLA [Concomitant]
     Active Substance: APREMILAST
  5. LANTUS [Concomitant]
     Active Substance: INSULIN GLARGINE
  6. KALYDECO [Suspect]
     Active Substance: IVACAFTOR
     Indication: CYSTIC FIBROSIS
     Dosage: 150 MG, BID
     Route: 048
     Dates: start: 201708
  7. CALCITRIOL. [Concomitant]
     Active Substance: CALCITRIOL
  8. TOBI [Concomitant]
     Active Substance: TOBRAMYCIN
  9. LEFLUNOMIDE. [Concomitant]
     Active Substance: LEFLUNOMIDE
  10. AMITRIPTYLINE [Concomitant]
     Active Substance: AMITRIPTYLINE
  11. METFORMIN [Concomitant]
     Active Substance: METFORMIN HYDROCHLORIDE
  12. OMEPRAZOLE. [Concomitant]
     Active Substance: OMEPRAZOLE
  13. BACTRIM [Concomitant]
     Active Substance: SULFAMETHOXAZOLE\TRIMETHOPRIM
  14. VITAMIN C [Concomitant]
     Active Substance: ASCORBIC ACID
  15. VITAMIN D [Concomitant]
     Active Substance: CHOLECALCIFEROL
  16. FOLIC ACID. [Concomitant]
     Active Substance: FOLIC ACID
  17. PREDNISONE. [Concomitant]
     Active Substance: PREDNISONE
     Indication: PSORIATIC ARTHROPATHY
  18. MELATONIN [Concomitant]
     Active Substance: MELATONIN
  19. PROVENTIL [Concomitant]
     Active Substance: ALBUTEROL
  20. NOVOLOG [Concomitant]
     Active Substance: INSULIN ASPART
  21. PULMOZYME [Concomitant]
     Active Substance: DORNASE ALFA
  22. HYPERSAL [Concomitant]

REACTIONS (2)
  - Psoriatic arthropathy [Recovered/Resolved]
  - Productive cough [Recovered/Resolved]

NARRATIVE: CASE EVENT DATE: 201708
